FAERS Safety Report 24039329 (Version 1)
Quarter: 2024Q3

REPORT INFORMATION
  Report Type: Spontaneous
  Country: BR (occurrence: BR)
  Receive Date: 20240702
  Receipt Date: 20240702
  Transmission Date: 20241017
  Serious: Yes (Death, Other)
  Sender: BOEHRINGER INGELHEIM
  Company Number: BR-BoehringerIngelheim-2024-BI-037047

PATIENT
  Age: 82 Year
  Sex: Female

DRUGS (1)
  1. ATROVENT [Suspect]
     Active Substance: IPRATROPIUM BROMIDE
     Indication: Bronchitis chronic
     Dosage: DROPS.?SHE USED IT SPORADICALLY, USING 5ML OF SERUM AND 10 DROPS OF ATROVENT BY MOUTH
     Route: 055
     Dates: start: 2017, end: 202209

REACTIONS (9)
  - Respiratory failure [Fatal]
  - Sepsis [Fatal]
  - Renal disorder [Fatal]
  - Cerebrovascular accident [Unknown]
  - Cerebrovascular accident [Unknown]
  - Bedridden [Recovered/Resolved]
  - Bronchitis [Unknown]
  - Panic attack [Unknown]
  - Depression [Unknown]

NARRATIVE: CASE EVENT DATE: 20170101
